FAERS Safety Report 9999260 (Version 1)
Quarter: 2014Q1

REPORT INFORMATION
  Report Type: Spontaneous
  Country: US (occurrence: None)
  Receive Date: 20140311
  Receipt Date: 20140311
  Transmission Date: 20141002
  Serious: Yes (Other)
  Sender: FDA-Public Use
  Company Number: None

PATIENT
  Age: 42 Year
  Sex: Male
  Weight: 82.56 kg

DRUGS (1)
  1. CELEBREX [Suspect]
     Indication: ARTHRITIS
     Dosage: 1 CAPSULE  ONCE DAILY TAKEN BY MOUTH
     Route: 048
     Dates: start: 20140307, end: 20140308

REACTIONS (6)
  - Dyspepsia [None]
  - Nausea [None]
  - Vomiting [None]
  - Abdominal pain [None]
  - Flatulence [None]
  - Insomnia [None]
